FAERS Safety Report 25228677 (Version 3)
Quarter: 2025Q2

REPORT INFORMATION
  Report Type: Spontaneous
  Country: US (occurrence: US)
  Receive Date: 20250423
  Receipt Date: 20250513
  Transmission Date: 20250717
  Serious: No
  Sender: SHIONOGI
  Company Number: US-shionogi-202500003898

PATIENT
  Age: 74 Year
  Sex: Female

DRUGS (1)
  1. CEFIDEROCOL [Suspect]
     Active Substance: CEFIDEROCOL
     Indication: Skin infection
     Route: 042
     Dates: end: 20250409

REACTIONS (3)
  - Infusion site erythema [Unknown]
  - Rash [Not Recovered/Not Resolved]
  - Off label use [Unknown]
